FAERS Safety Report 22907027 (Version 2)
Quarter: 2023Q4

REPORT INFORMATION
  Report Type: Report from Study
  Country: DE (occurrence: DE)
  Receive Date: 20230905
  Receipt Date: 20231226
  Transmission Date: 20240110
  Serious: Yes (Disabling, Other)
  Sender: FDA-Public Use
  Company Number: DE-TAKEDA-2023TUS085401

PATIENT
  Age: 63 Year
  Sex: Female
  Weight: 100 kg

DRUGS (27)
  1. PARATHYROID HORMONE [Suspect]
     Active Substance: PARATHYROID HORMONE
     Indication: Hypoparathyroidism
     Dosage: 25 MICROGRAM, QD
     Route: 058
     Dates: start: 20180829, end: 20180904
  2. PARATHYROID HORMONE [Suspect]
     Active Substance: PARATHYROID HORMONE
     Indication: Hypoparathyroidism
     Dosage: 25 MICROGRAM, QD
     Route: 058
     Dates: start: 20180829, end: 20180904
  3. PARATHYROID HORMONE [Suspect]
     Active Substance: PARATHYROID HORMONE
     Indication: Hypoparathyroidism
     Dosage: 25 MICROGRAM, QD
     Route: 058
     Dates: start: 20180829, end: 20180904
  4. PARATHYROID HORMONE [Suspect]
     Active Substance: PARATHYROID HORMONE
     Dosage: 50 MICROGRAM, QD
     Route: 058
     Dates: start: 20180905, end: 20181119
  5. PARATHYROID HORMONE [Suspect]
     Active Substance: PARATHYROID HORMONE
     Dosage: 50 MICROGRAM, QD
     Route: 058
     Dates: start: 20180905, end: 20181119
  6. PARATHYROID HORMONE [Suspect]
     Active Substance: PARATHYROID HORMONE
     Dosage: 50 MICROGRAM, QD
     Route: 058
     Dates: start: 20180905, end: 20181119
  7. PARATHYROID HORMONE [Suspect]
     Active Substance: PARATHYROID HORMONE
     Dosage: 75 MICROGRAM, QD
     Route: 058
     Dates: start: 20181120, end: 20190210
  8. PARATHYROID HORMONE [Suspect]
     Active Substance: PARATHYROID HORMONE
     Dosage: 75 MICROGRAM, QD
     Route: 058
     Dates: start: 20181120, end: 20190210
  9. PARATHYROID HORMONE [Suspect]
     Active Substance: PARATHYROID HORMONE
     Dosage: 75 MICROGRAM, QD
     Route: 058
     Dates: start: 20181120, end: 20190210
  10. PARATHYROID HORMONE [Suspect]
     Active Substance: PARATHYROID HORMONE
     Dosage: 100 MICROGRAM, QD
     Route: 058
     Dates: start: 20190211, end: 20220514
  11. PARATHYROID HORMONE [Suspect]
     Active Substance: PARATHYROID HORMONE
     Dosage: 100 MICROGRAM, QD
     Route: 058
     Dates: start: 20190211, end: 20220514
  12. PARATHYROID HORMONE [Suspect]
     Active Substance: PARATHYROID HORMONE
     Dosage: 100 MICROGRAM, QD
     Route: 058
     Dates: start: 20190211, end: 20220514
  13. PARATHYROID HORMONE [Suspect]
     Active Substance: PARATHYROID HORMONE
     Dosage: 75 MICROGRAM, QD
     Route: 058
     Dates: start: 20220515
  14. PARATHYROID HORMONE [Suspect]
     Active Substance: PARATHYROID HORMONE
     Dosage: 75 MICROGRAM, QD
     Route: 058
     Dates: start: 20220515
  15. PARATHYROID HORMONE [Suspect]
     Active Substance: PARATHYROID HORMONE
     Dosage: 75 MICROGRAM, QD
     Route: 058
     Dates: start: 20220515
  16. Kalinor-retard [Concomitant]
     Indication: Diuretic therapy
     Dosage: UNK
     Route: 048
     Dates: start: 20140719
  17. HYPERICUM PERFORATUM WHOLE [Concomitant]
     Active Substance: HYPERICUM PERFORATUM WHOLE
     Indication: Depression
     Dosage: UNK
     Route: 048
     Dates: start: 201707, end: 20210916
  18. METFORMIN [Concomitant]
     Active Substance: METFORMIN HYDROCHLORIDE
     Indication: Diabetes mellitus
     Dosage: UNK
     Route: 048
     Dates: start: 20180426, end: 20210916
  19. CANDESARTAN [Concomitant]
     Active Substance: CANDESARTAN
     Indication: Hypertension
     Dosage: UNK
     Route: 048
     Dates: start: 2017
  20. PANTOPRAZOLE SODIUM [Concomitant]
     Active Substance: PANTOPRAZOLE SODIUM
     Indication: Abdominal pain
     Dosage: UNK
     Route: 048
     Dates: start: 202109, end: 20211018
  21. Novalgin [Concomitant]
     Indication: Abdominal pain
     Dosage: UNK
     Route: 048
     Dates: start: 202109, end: 202109
  22. EUTHYROX [Concomitant]
     Active Substance: LEVOTHYROXINE SODIUM
     Indication: Supplementation therapy
     Dosage: UNK
     Route: 048
     Dates: start: 2012
  23. IBUPROFEN [Concomitant]
     Active Substance: IBUPROFEN
     Indication: Prophylaxis
     Dosage: UNK
     Route: 048
     Dates: start: 20230707
  24. VITAMIN D [Concomitant]
     Active Substance: VITAMIN D NOS
     Dosage: 20000 INTERNATIONAL UNIT, 1/WEEK
     Route: 065
     Dates: start: 201901
  25. CALCIUM GLUCONATE [Concomitant]
     Active Substance: CALCIUM GLUCONATE
     Dosage: 1000 MILLIGRAM, BID
     Route: 065
     Dates: start: 20210311
  26. ALFACALCIDOL [Concomitant]
     Active Substance: ALFACALCIDOL
     Dosage: 300 MILLIGRAM, BID
     Route: 065
     Dates: start: 20220709
  27. MAGNESIUM [Concomitant]
     Active Substance: MAGNESIUM
     Dosage: 300 MILLIGRAM, BID
     Route: 065
     Dates: start: 20220709

REACTIONS (1)
  - Pneumonia [Recovered/Resolved with Sequelae]

NARRATIVE: CASE EVENT DATE: 20230303
